FAERS Safety Report 7272456-0 (Version None)
Quarter: 2011Q1

REPORT INFORMATION
  Report Type: 
  Country: None (occurrence: None)
  Receive Date: 20110127
  Receipt Date: 20110110
  Transmission Date: 20110831
  Serious: Yes (Life-Threatening, Other)
  Sender: FDA-Public Use
  Company Number: TPA2011A00336

PATIENT
  Age: 95 Year
  Sex: Female

DRUGS (6)
  1. LERCANIDIPINE [Concomitant]
  2. ADENURIC (FEBUXOSTAT) [Suspect]
     Indication: GOUTY TOPHUS
     Dosage: 80 MG (80 MG,1 IN 1 D) PER ORAL
     Route: 048
  3. NEBIVOLOL HCL [Concomitant]
  4. IBUPROFEN [Concomitant]
  5. TRANSTEC (BUPRENORPHINE) [Concomitant]
  6. TORSEMIDE [Concomitant]

REACTIONS (3)
  - ATRIAL FIBRILLATION [None]
  - FALL [None]
  - CEREBROVASCULAR ACCIDENT [None]
